FAERS Safety Report 9142631 (Version 2)
Quarter: 2013Q1

REPORT INFORMATION
  Report Type: Spontaneous
  Country: US (occurrence: US)
  Receive Date: 20130306
  Receipt Date: 20130327
  Transmission Date: 20140127
  Serious: Yes (Death)
  Sender: FDA-Public Use
  Company Number: PHEH2013US005134

PATIENT
  Age: 54 Year
  Sex: Female

DRUGS (1)
  1. NEORAL [Suspect]
     Indication: LIVER TRANSPLANT
     Route: 048
     Dates: start: 200803

REACTIONS (2)
  - Sepsis [Fatal]
  - Hepatic cirrhosis [Fatal]
